FAERS Safety Report 23405321 (Version 8)
Quarter: 2024Q2

REPORT INFORMATION
  Report Type: Spontaneous
  Country: BE (occurrence: BE)
  Receive Date: 20240116
  Receipt Date: 20240515
  Transmission Date: 20240716
  Serious: Yes (Hospitalization, Other)
  Sender: FDA-Public Use
  Company Number: BE-MYLANLABS-2023M1121759

PATIENT
  Age: 43 Year
  Sex: Male
  Weight: 70 kg

DRUGS (13)
  1. POSACONAZOLE [Suspect]
     Active Substance: POSACONAZOLE
     Indication: Fungal infection
     Dosage: 300 MILLIGRAM, OD
     Route: 048
     Dates: start: 20221007, end: 20221205
  2. POSACONAZOLE [Suspect]
     Active Substance: POSACONAZOLE
     Indication: Cerebral aspergillosis
  3. CASPOFUNGIN ACETATE [Interacting]
     Active Substance: CASPOFUNGIN ACETATE
     Indication: Aspergillus infection
     Dosage: 50 MILLIGRAM, OD
     Route: 042
     Dates: start: 20220914, end: 20220926
  4. CASPOFUNGIN ACETATE [Interacting]
     Active Substance: CASPOFUNGIN ACETATE
     Dosage: 50 MILLIGRAM, OD
     Route: 042
     Dates: start: 20221205, end: 20230331
  5. TACROLIMUS [Interacting]
     Active Substance: TACROLIMUS
     Indication: Prophylaxis against transplant rejection
     Dosage: BASED UPON THERAPEUTIC DRUG MONITORING (TDM), BD
     Route: 048
     Dates: start: 202202, end: 20221125
  6. TACROLIMUS [Interacting]
     Active Substance: TACROLIMUS
     Indication: Immunosuppression
  7. SIROLIMUS [Interacting]
     Active Substance: SIROLIMUS
     Indication: Prophylaxis against transplant rejection
     Dosage: UNK
     Dates: start: 20221125
  8. AMBISOME [Suspect]
     Active Substance: AMPHOTERICIN B
     Indication: Aspergillus infection
     Dosage: 3MG/KG, OD
     Route: 042
     Dates: start: 20221007, end: 20221110
  9. COTRIMOXAZOLE [Suspect]
     Active Substance: SULFAMETHOXAZOLE\TRIMETHOPRIM
     Indication: Nocardiosis
     Dosage: 960 MILLIGRAM, BD, 2 TABLETS
     Route: 048
     Dates: start: 20220926, end: 20221115
  10. MEROPENEM [Concomitant]
     Active Substance: MEROPENEM
     Indication: Central nervous system infection
     Dosage: 1 GRAM, TD
     Route: 042
     Dates: start: 20220926, end: 20231110
  11. VFEND [Concomitant]
     Active Substance: VORICONAZOLE
     Indication: Aspergillus infection
     Dosage: PLUS/MINUS (+-) 300MG (CHANGED BASED UPON THERAPEUTIC DRUG MONITORING [TDM])/ BD
     Route: 042
     Dates: start: 20220902, end: 20231007
  12. MYCOPHENOLIC ACID [Concomitant]
     Active Substance: MYCOPHENOLIC ACID
     Indication: Prophylaxis against transplant rejection
     Dosage: 1 GRAM, BD
     Route: 048
     Dates: start: 20220213
  13. MYCOPHENOLIC ACID [Concomitant]
     Active Substance: MYCOPHENOLIC ACID
     Indication: Immunosuppression

REACTIONS (4)
  - Microangiopathic haemolytic anaemia [Recovered/Resolved]
  - Pancytopenia [Recovered/Resolved]
  - Off label use [Unknown]
  - Labelled drug-drug interaction issue [Unknown]

NARRATIVE: CASE EVENT DATE: 20220101
